FAERS Safety Report 6382617-0 (Version None)
Quarter: 2009Q3

REPORT INFORMATION
  Report Type: 
  Country: None (occurrence: None)
  Receive Date: 20090930
  Receipt Date: 20090921
  Transmission Date: 20100115
  Serious: Yes (Hospitalization)
  Sender: FDA-Public Use
  Company Number: US-BAYER-200933452NA

PATIENT
  Age: 34 Year
  Sex: Female
  Weight: 64 kg

DRUGS (5)
  1. CAMPATH [Suspect]
     Indication: RELAPSING-REMITTING MULTIPLE SCLEROSIS
     Dosage: TOTAL DAILY DOSE: 20 MG
     Route: 042
     Dates: start: 20020301, end: 20020301
  2. CAMPATH [Suspect]
     Dosage: TOTAL DAILY DOSE: 20 MG
     Route: 042
     Dates: start: 20030316, end: 20030320
  3. FLOMAX [Concomitant]
  4. EVENING PRIMROSE [Concomitant]
     Indication: PROPHYLAXIS
  5. VITAMIN E [Concomitant]

REACTIONS (1)
  - GOODPASTURE'S SYNDROME [None]
